FAERS Safety Report 9143197 (Version 1)
Quarter: 2013Q1

REPORT INFORMATION
  Report Type: Spontaneous
  Country: US (occurrence: US)
  Receive Date: 20130306
  Receipt Date: 20130306
  Transmission Date: 20140127
  Serious: No
  Sender: FDA-Public Use
  Company Number: US-ENDO PHARMACEUTICALS INC.-OPER20100181

PATIENT
  Sex: Female

DRUGS (1)
  1. OPANA ER [Suspect]
     Indication: PAIN
     Dosage: 30  MG
     Route: 048
     Dates: start: 201001

REACTIONS (5)
  - Malaise [Unknown]
  - Tremor [Unknown]
  - Nausea [Unknown]
  - Anxiety [Unknown]
  - Drug ineffective [Unknown]
